FAERS Safety Report 21299000 (Version 1)
Quarter: 2022Q3

REPORT INFORMATION
  Report Type: Spontaneous
  Country: US (occurrence: None)
  Receive Date: 20220905
  Receipt Date: 20220905
  Transmission Date: 20221027
  Serious: Yes (Disabling)
  Sender: FDA-Public Use
  Company Number: None

PATIENT
  Age: 44 Year
  Sex: Female
  Weight: 66.6 kg

DRUGS (1)
  1. LEVOTHYROXINE [Suspect]
     Active Substance: LEVOTHYROXINE
     Indication: Hypothyroidism
     Dates: start: 20120601, end: 20210601

REACTIONS (5)
  - Basedow^s disease [None]
  - Therapeutic drug monitoring analysis not performed [None]
  - Photosensitivity reaction [None]
  - Diplopia [None]
  - Thyrotoxic crisis [None]

NARRATIVE: CASE EVENT DATE: 20210528
